FAERS Safety Report 8569554 (Version 2)
Quarter: 2014Q1

REPORT INFORMATION
  Report Type: Spontaneous
  Country: US (occurrence: None)
  Receive Date: 20120323
  Receipt Date: 20130305
  Transmission Date: 20141002
  Serious: Yes (Other)
  Sender: FDA-Public Use
  Company Number: 163-21880-11113391

PATIENT
  Age: 74 Year
  Sex: Male

DRUGS (1)
  1. REVLIMID ( LENALIDOMIDE) (10 MILLIGRAM, CAPSULES) [Suspect]
     Indication: LYMPHOMA
     Dosage: 20 MG, DAILY FOR 14 DAYS, THEN TAKE 14 DAYS OFF, PO
     Route: 048
     Dates: start: 20110517, end: 2011

REACTIONS (1)
  - General physical health deterioration [None]
